FAERS Safety Report 23807746 (Version 1)
Quarter: 2024Q2

REPORT INFORMATION
  Report Type: Spontaneous
  Country: US (occurrence: US)
  Receive Date: 20240502
  Receipt Date: 20240502
  Transmission Date: 20240716
  Serious: No
  Sender: FDA-Public Use
  Company Number: US-JNJFOC-20240471701

PATIENT
  Age: 3 Decade
  Sex: Female

DRUGS (2)
  1. STELARA [Suspect]
     Active Substance: USTEKINUMAB
     Indication: Crohn^s disease
     Route: 058
     Dates: start: 202302
  2. STELARA [Suspect]
     Active Substance: USTEKINUMAB

REACTIONS (6)
  - Abdominal pain [Not Recovered/Not Resolved]
  - Tendon pain [Not Recovered/Not Resolved]
  - Injection site haemorrhage [Unknown]
  - Back pain [Unknown]
  - Headache [Unknown]
  - Off label use [Unknown]
